FAERS Safety Report 7103841-5 (Version None)
Quarter: 2010Q4

REPORT INFORMATION
  Report Type: 
  Country: None (occurrence: None)
  Receive Date: 20101115
  Receipt Date: 20101111
  Transmission Date: 20110411
  Serious: Yes (Death, Other)
  Sender: FDA-Public Use
  Company Number: JP-PFIZER INC-2010146209

PATIENT
  Age: 81 Year
  Sex: Male
  Weight: 48 kg

DRUGS (3)
  1. LYRICA [Suspect]
     Indication: POST HERPETIC NEURALGIA
     Dosage: UNK
     Route: 048
     Dates: start: 20101101
  2. AMARYL [Concomitant]
     Dosage: UNK
  3. PENTAZOCINE LACTATE [Concomitant]
     Dosage: UNK

REACTIONS (3)
  - APATHY [None]
  - DEATH [None]
  - MUSCULAR WEAKNESS [None]
